FAERS Safety Report 10182421 (Version 1)
Quarter: 2014Q2

REPORT INFORMATION
  Report Type: Spontaneous
  Country: US (occurrence: US)
  Receive Date: 20140520
  Receipt Date: 20140520
  Transmission Date: 20141212
  Serious: No
  Sender: FDA-Public Use
  Company Number: US-BAYER-2014-047342

PATIENT
  Age: 33 Year
  Sex: Female

DRUGS (1)
  1. FINACEA [Suspect]
     Indication: ROSACEA
     Dosage: UNK UNK, BID
     Route: 061
     Dates: start: 20140320, end: 20140325

REACTIONS (6)
  - Swelling face [None]
  - Paraesthesia [Recovered/Resolved]
  - Pain [Recovered/Resolved]
  - Pruritus [Recovered/Resolved]
  - Eye swelling [Recovered/Resolved]
  - Erythema [Recovered/Resolved]
